FAERS Safety Report 15298088 (Version 1)
Quarter: 2018Q3

REPORT INFORMATION
  Report Type: Report from Study
  Country: US (occurrence: US)
  Receive Date: 20180820
  Receipt Date: 20180820
  Transmission Date: 20181010
  Serious: Yes (Hospitalization, Other)
  Sender: FDA-Public Use
  Company Number: PHEH2018US033610

PATIENT
  Age: 4 Year
  Sex: Female
  Weight: 18.1 kg

DRUGS (18)
  1. LEVOTHYROXINE. [Concomitant]
     Active Substance: LEVOTHYROXINE
     Indication: HYPOTHYROIDISM
     Dosage: 37.5 UG, UNK(1/2 TABLET OF 75 MCG) VIA G TUBE
     Route: 048
     Dates: start: 20180403
  2. CYSTAGON [Concomitant]
     Active Substance: CYSTEAMINE BITARTRATE
     Indication: PRODUCT USED FOR UNKNOWN INDICATION
     Dosage: 2 DF, QID (VIA G TUBE)
     Route: 065
     Dates: start: 20180622
  3. FLORASTOR KIDS [Concomitant]
     Indication: PRODUCT USED FOR UNKNOWN INDICATION
     Dosage: 1 DF, QD
     Route: 048
     Dates: start: 20180308
  4. RANITIDINE. [Concomitant]
     Active Substance: RANITIDINE
     Indication: PRODUCT USED FOR UNKNOWN INDICATION
     Dosage: 30 MG, BID
     Route: 048
     Dates: start: 20180315
  5. VITAMIN D [Concomitant]
     Active Substance: CHOLECALCIFEROL
     Indication: VITAMIN SUPPLEMENTATION
     Route: 065
  6. OMNITROPE [Suspect]
     Active Substance: SOMATROPIN
     Dosage: 0.7 MG, QD
     Route: 058
     Dates: start: 20180403
  7. PEDIALYTE [Concomitant]
     Active Substance: POTASSIUM CITRATE\SODIUM CITRATE\ZINC
     Indication: PRODUCT USED FOR UNKNOWN INDICATION
     Dosage: 177 ML, BID (VIA J TUBE)
     Route: 065
  8. BACITRACIN. [Concomitant]
     Active Substance: BACITRACIN
     Indication: PRODUCT USED FOR UNKNOWN INDICATION
     Dosage: UNK (500 UNITS/G)
     Route: 061
     Dates: start: 20180701
  9. OMNITROPE [Suspect]
     Active Substance: SOMATROPIN
     Indication: GROWTH RETARDATION
     Dosage: 0.7 MG, QD (0.27MG/KG/WEEK)
     Route: 058
     Dates: start: 20160608, end: 201609
  10. OMNITROPE [Suspect]
     Active Substance: SOMATROPIN
     Dosage: 0.7 MG, QD
     Route: 058
     Dates: start: 20180807
  11. SODIUM PHOSPHATE [Concomitant]
     Active Substance: SODIUM PHOSPHATE
     Indication: PRODUCT USED FOR UNKNOWN INDICATION
     Dosage: 3.5 ML, TID (VIA G TUBE)
     Route: 065
     Dates: start: 20180712
  12. FERROUS SULFATE. [Concomitant]
     Active Substance: FERROUS SULFATE
     Indication: MINERAL SUPPLEMENTATION
     Dosage: UNK (22.5 MG=1.5 ML) (VIA G TUBE)
     Route: 065
     Dates: start: 20180712
  13. NYSTATIN. [Concomitant]
     Active Substance: NYSTATIN
     Indication: PRODUCT USED FOR UNKNOWN INDICATION
     Dosage: UNK (100,000 UNITS/G)
     Route: 061
     Dates: start: 20170809
  14. POTASSIUM CHLORIDE. [Concomitant]
     Active Substance: POTASSIUM CHLORIDE
     Indication: PRODUCT USED FOR UNKNOWN INDICATION
     Dosage: UNK (20/15 MEQ/ML) VIA G TUBE
     Route: 065
     Dates: start: 20180517
  15. INDOCIN [Concomitant]
     Active Substance: INDOMETHACIN
     Indication: PRODUCT USED FOR UNKNOWN INDICATION
     Dosage: UNK UNK, BID (16.5MG =3.3ML VIA G TUBE)
     Dates: start: 20180517
  16. LEVOCARNITINE. [Concomitant]
     Active Substance: LEVOCARNITINE
     Indication: PRODUCT USED FOR UNKNOWN INDICATION
     Dosage: 400 MG, TID (400 MG=4 ML )
     Dates: start: 20180418
  17. NYSTATIN. [Concomitant]
     Active Substance: NYSTATIN
     Dosage: UNK (100,000 UNITS/G)
     Route: 061
     Dates: start: 20180701
  18. ALBUSTIX [Concomitant]
     Indication: PRODUCT USED FOR UNKNOWN INDICATION
     Dosage: UNK (1 BOX 2 REFILLS)
     Route: 065
     Dates: start: 20180712

REACTIONS (13)
  - Nephrotic syndrome [Unknown]
  - Hypernatraemia [Unknown]
  - Polyuria [Unknown]
  - Sinus tachycardia [Unknown]
  - Vomiting [Recovered/Resolved]
  - Proteinuria [Unknown]
  - Blood pressure decreased [Unknown]
  - Diarrhoea [Recovered/Resolved]
  - Post procedural complication [Unknown]
  - Blood thyroid stimulating hormone increased [Recovered/Resolved]
  - Hypokalaemia [Unknown]
  - Obesity [Unknown]
  - Normocytic anaemia [Unknown]

NARRATIVE: CASE EVENT DATE: 201609
